FAERS Safety Report 24346978 (Version 1)
Quarter: 2024Q3

REPORT INFORMATION
  Report Type: Spontaneous
  Country: US (occurrence: US)
  Receive Date: 20240921
  Receipt Date: 20240921
  Transmission Date: 20241017
  Serious: No
  Sender: ROCHE
  Company Number: US-CHEPLA-2024011740

PATIENT
  Age: 45 Year
  Sex: Male

DRUGS (2)
  1. VALGANCICLOVIR [Suspect]
     Active Substance: VALGANCICLOVIR
     Indication: Cytomegalovirus infection
     Dosage: BID
     Route: 050
  2. VALGANCICLOVIR [Suspect]
     Active Substance: VALGANCICLOVIR
     Dosage: BID
     Route: 050

REACTIONS (2)
  - Pruritus [Unknown]
  - Off label use [Unknown]
